FAERS Safety Report 22134748 (Version 1)
Quarter: 2023Q1

REPORT INFORMATION
  Report Type: Spontaneous
  Country: AU (occurrence: AU)
  Receive Date: 20230324
  Receipt Date: 20230324
  Transmission Date: 20230417
  Serious: Yes (Life-Threatening, Hospitalization, Other)
  Sender: FDA-Public Use
  Company Number: AU-GLAXOSMITHKLINEAU2022GSK-105289

PATIENT
  Age: 6 Decade
  Sex: Male

DRUGS (21)
  1. MYCOPHENOLATE SODIUM [Suspect]
     Active Substance: MYCOPHENOLATE SODIUM
     Indication: Immunosuppressant drug therapy
  2. TACROLIMUS [Suspect]
     Active Substance: TACROLIMUS
     Indication: Immunosuppressant drug therapy
  3. PREDNISOLONE [Suspect]
     Active Substance: PREDNISOLONE
     Indication: Immunosuppressant drug therapy
     Dosage: FOR SEVERAL WEEKS
  4. BACTRIM DS [Concomitant]
     Active Substance: SULFAMETHOXAZOLE\TRIMETHOPRIM
     Dosage: 1/2 TAB TWO TIMES WEEKLY
  5. ARANESP [Concomitant]
     Active Substance: DARBEPOETIN ALFA
  6. CALCIUM CARBONATE [Concomitant]
     Active Substance: CALCIUM CARBONATE
  7. CREON [Concomitant]
     Active Substance: PANCRELIPASE AMYLASE\PANCRELIPASE LIPASE\PANCRELIPASE PROTEASE
     Dosage: PRO RE NATA
  8. CHOLECALCIFEROL [Concomitant]
     Active Substance: CHOLECALCIFEROL
  9. DENOSUMAB [Concomitant]
     Active Substance: DENOSUMAB
  10. METHYLDOPA [Concomitant]
     Active Substance: METHYLDOPA
  11. AZITHROMYCIN [Concomitant]
     Active Substance: AZITHROMYCIN
     Dosage: 250 MG THREE TIMES WEEKLY
  12. CALCITRIOL [Concomitant]
     Active Substance: CALCITRIOL
  13. METOPROLOL [Concomitant]
     Active Substance: METOPROLOL
  14. PRAZOSIN [Concomitant]
     Active Substance: PRAZOSIN
  15. LERCANIDIPINE [Concomitant]
     Active Substance: LERCANIDIPINE
  16. BOTULINUM TOXIN TYPE A [Concomitant]
     Active Substance: BOTULINUM TOXIN TYPE A
  17. INSULIN ASPART [Concomitant]
     Active Substance: INSULIN ASPART
     Dosage: EIGHT UNITS THREE TIMES A DAY
     Route: 058
  18. INSULIN HUMAN [Concomitant]
     Active Substance: INSULIN HUMAN
     Dosage: EIGHT UNITS DAILY
  19. SODIUM CHLORIDE [Concomitant]
     Active Substance: SODIUM CHLORIDE
  20. FUROSEMIDE [Concomitant]
     Active Substance: FUROSEMIDE
  21. PREDNISOLONE [Suspect]
     Active Substance: PREDNISOLONE
     Indication: Immunosuppressant drug therapy

REACTIONS (10)
  - Intracranial pressure increased [Recovered/Resolved]
  - Keratitis fungal [Recovered/Resolved]
  - Acute kidney injury [Recovered/Resolved]
  - Hypercalcaemia [Recovered/Resolved]
  - Fungal myositis [Recovered/Resolved]
  - Microsporidia infection [Recovered/Resolved]
  - Weight decreased [Recovered/Resolved]
  - Posterior cortical atrophy [Recovered/Resolved]
  - Renal tubular injury [Recovered/Resolved]
  - Glomerulosclerosis [Recovered/Resolved]
